FAERS Safety Report 8614565 (Version 3)
Quarter: 2012Q4

REPORT INFORMATION
  Report Type: 
  Country: CA (occurrence: CA)
  Receive Date: 20120614
  Receipt Date: 20121029
  Transmission Date: 20130627
  Serious: Yes (Hospitalization, Other)
  Sender: FDA-Public Use
  Company Number: CA-JNJFOC-20120603012

PATIENT
  Age: 26 Year
  Sex: Female
  Weight: 80 kg

DRUGS (4)
  1. REMICADE [Suspect]
     Indication: COLITIS ULCERATIVE
     Dosage: has had 26 infusions
     Route: 042
     Dates: start: 20090505
  2. CIPRALEX [Concomitant]
     Route: 065
  3. IRON [Concomitant]
     Route: 065
  4. MATERNAL VITAMINS [Concomitant]
     Route: 065

REACTIONS (4)
  - Gestational diabetes [Not Recovered/Not Resolved]
  - Exposure during pregnancy [Recovered/Resolved]
  - Road traffic accident [Recovered/Resolved]
  - Urinary tract infection [Recovered/Resolved]
